FAERS Safety Report 15010686 (Version 1)
Quarter: 2018Q2

REPORT INFORMATION
  Report Type: Spontaneous
  Country: US (occurrence: US)
  Receive Date: 20180529
  Receipt Date: 20180529
  Transmission Date: 20180711
  Serious: Yes (Other)
  Sender: FDA-Public Use
  Company Number: None

PATIENT
  Age: 27 Year
  Sex: Female
  Weight: 67.5 kg

DRUGS (1)
  1. MIRENA [Suspect]
     Active Substance: LEVONORGESTREL
     Indication: CONTRACEPTION
     Dosage: ?          QUANTITY:1 IUD;OTHER FREQUENCY:5 YEARS;?
     Route: 067
     Dates: start: 20170317, end: 20180528

REACTIONS (1)
  - Alopecia [None]

NARRATIVE: CASE EVENT DATE: 20180528
